FAERS Safety Report 7199717-8 (Version None)
Quarter: 2010Q4

REPORT INFORMATION
  Report Type: 
  Country: None (occurrence: None)
  Receive Date: 20101228
  Receipt Date: 20101220
  Transmission Date: 20110411
  Serious: Yes (Hospitalization)
  Sender: FDA-Public Use
  Company Number: US-ROCHE-492181

PATIENT
  Sex: Male
  Weight: 60.3 kg

DRUGS (4)
  1. BEVACIZUMAB [Suspect]
     Indication: NON-SMALL CELL LUNG CANCER
     Dosage: 900 MG, Q3W
     Route: 042
     Dates: start: 20070320
  2. ERLOTINIB [Suspect]
     Indication: NON-SMALL CELL LUNG CANCER
     Dosage: 150 MG, QD
     Route: 048
     Dates: start: 20070320
  3. PRILOSEC [Concomitant]
     Dosage: UNK, BID
  4. DIGITEK [Concomitant]
     Dosage: 125 MCG, QD

REACTIONS (1)
  - PANCREATITIS ACUTE [None]
